FAERS Safety Report 9213885 (Version 3)
Quarter: 2013Q2

REPORT INFORMATION
  Report Type: Spontaneous
  Country: JP (occurrence: JP)
  Receive Date: 20130405
  Receipt Date: 20130527
  Transmission Date: 20140414
  Serious: Yes (Life-Threatening)
  Sender: FDA-Public Use
  Company Number: JP-AMGEN-JPNSP2013023780

PATIENT
  Age: 90 Year
  Sex: Male
  Weight: 50 kg

DRUGS (3)
  1. RANMARK [Suspect]
     Indication: METASTASES TO BONE
     Dosage: 120 MG, QD
     Route: 058
     Dates: start: 20121203, end: 20130305
  2. RANMARK [Suspect]
     Route: 058
     Dates: start: 20121203, end: 20130305
  3. ZOLADEX LA [Concomitant]
     Route: 058
     Dates: start: 20090115

REACTIONS (1)
  - Anaemia [Recovering/Resolving]
